FAERS Safety Report 8851918 (Version 2)
Quarter: 2012Q4

REPORT INFORMATION
  Report Type: 
  Country: DE (occurrence: DE)
  Receive Date: 20121022
  Receipt Date: 20121031
  Transmission Date: 20130627
  Serious: Yes (Disabling, Other)
  Sender: FDA-Public Use
  Company Number: PHHY2012DE093511

PATIENT
  Sex: Female

DRUGS (7)
  1. FORMOTEROL FUMARATE [Suspect]
     Dosage: 12 ug, UNK
     Dates: start: 201108, end: 20120703
  2. DIPHENHYDRAMINE [Concomitant]
     Dosage: 50 mg, 1 or 2 DF as needed
  3. OMEPRAZOLE [Concomitant]
     Dosage: 1or 2 DF as needed
  4. DICLOFENAC [Concomitant]
     Dosage: 1 DF per date until surgery then 1DF as needed
  5. LOSARTAN [Concomitant]
     Dates: start: 201204
  6. THEOPHYLLINE [Concomitant]
     Dosage: 1 DF, QD
     Dates: start: 201204
  7. LOPERAMID [Concomitant]
     Dosage: 1 or 2 DF as needed
     Dates: start: 1999

REACTIONS (3)
  - Ageusia [Not Recovered/Not Resolved]
  - Dysgeusia [Not Recovered/Not Resolved]
  - Paraesthesia [Not Recovered/Not Resolved]
